FAERS Safety Report 12492124 (Version 1)
Quarter: 2016Q2

REPORT INFORMATION
  Report Type: Spontaneous
  Country: BR (occurrence: BR)
  Receive Date: 20160623
  Receipt Date: 20160623
  Transmission Date: 20160815
  Serious: Yes (Death)
  Sender: FDA-Public Use
  Company Number: BR-ELI_LILLY_AND_COMPANY-BR201606007334

PATIENT
  Age: 65 Year
  Sex: Female
  Weight: 45 kg

DRUGS (8)
  1. MACRODANTIN [Suspect]
     Active Substance: NITROFURANTOIN
     Indication: ANTIBIOTIC THERAPY
     Dosage: 100 MG, UNKNOWN
     Route: 065
     Dates: start: 201512, end: 201606
  2. ANCORON [Suspect]
     Active Substance: AMIODARONE HYDROCHLORIDE
     Indication: PRODUCT USED FOR UNKNOWN INDICATION
     Dosage: 200 MG, UNKNOWN
     Route: 065
     Dates: start: 201512, end: 201606
  3. EFFIENT [Suspect]
     Active Substance: PRASUGREL HYDROCHLORIDE
     Indication: STENT PLACEMENT
     Dosage: 10 MG, QD
     Route: 048
     Dates: start: 201512, end: 201606
  4. AAS [Suspect]
     Active Substance: ASPIRIN
     Indication: PRODUCT USED FOR UNKNOWN INDICATION
     Dosage: 100 MG, UNKNOWN
     Route: 048
     Dates: start: 201512, end: 201606
  5. ESPIRONOLACTONA [Suspect]
     Active Substance: SPIRONOLACTONE
     Indication: RENAL DISORDER
     Dosage: UNK UNK, UNKNOWN
     Route: 065
     Dates: start: 201512, end: 201606
  6. ROSUCOR [Suspect]
     Active Substance: ROSUVASTATIN CALCIUM
     Indication: PRODUCT USED FOR UNKNOWN INDICATION
     Dosage: 20 MG, UNKNOWN
     Route: 048
     Dates: start: 201512, end: 201606
  7. ROSUVASTATINA                      /01588601/ [Suspect]
     Active Substance: ROSUVASTATIN
     Indication: PRODUCT USED FOR UNKNOWN INDICATION
     Dosage: UNK UNK, UNKNOWN
     Route: 048
     Dates: start: 201512, end: 201606
  8. LASIX [Suspect]
     Active Substance: FUROSEMIDE
     Indication: RENAL DISORDER
     Dosage: UNK UNK, UNKNOWN
     Route: 065
     Dates: start: 201512, end: 201606

REACTIONS (2)
  - Weight decreased [Unknown]
  - Death [Fatal]

NARRATIVE: CASE EVENT DATE: 20160608
